FAERS Safety Report 15113549 (Version 1)
Quarter: 2018Q3

REPORT INFORMATION
  Report Type: Spontaneous
  Country: JP (occurrence: JP)
  Receive Date: 20180706
  Receipt Date: 20180706
  Transmission Date: 20181010
  Serious: Yes (Other)
  Sender: FDA-Public Use
  Company Number: JP-TEVA-2018-JP-921993

PATIENT
  Age: 68 Year
  Sex: Female

DRUGS (6)
  1. OXYCODONE [Suspect]
     Active Substance: OXYCODONE
     Indication: PAIN
     Dosage: EXTENDED RELEASE (CANCER PAIN). SHE ADDITIONALLY STARTED RECEIVING OXYCODONE 10MG FOR OSTEONECROSIS.
     Route: 065
  2. ZOLENDRONATE [Suspect]
     Active Substance: ZOLEDRONIC ACID
     Indication: PROPHYLAXIS
     Route: 042
  3. DENOSUMAB [Suspect]
     Active Substance: DENOSUMAB
     Route: 065
  4. LOXOPROFEN SODIUM [Concomitant]
     Active Substance: LOXOPROFEN SODIUM
     Indication: PAIN
     Route: 065
  5. NAPROXEN. [Concomitant]
     Active Substance: NAPROXEN
     Indication: PAIN
     Route: 065
  6. OXYCODONE [Suspect]
     Active Substance: OXYCODONE
     Indication: PAIN
     Dosage: EXTENDED RELEASE (FOR OSTEONECROSIS?ASSOCIATED PAIN).
     Route: 065

REACTIONS (8)
  - Gingivitis [Unknown]
  - Quality of life decreased [Unknown]
  - Fistula [Recovering/Resolving]
  - Osteonecrosis of jaw [Not Recovered/Not Resolved]
  - Hypoaesthesia [Not Recovered/Not Resolved]
  - Somnolence [Unknown]
  - Infection [Unknown]
  - Paraesthesia [Unknown]
